FAERS Safety Report 8815362 (Version 3)
Quarter: 2013Q1

REPORT INFORMATION
  Report Type: Spontaneous
  Country: US (occurrence: US)
  Receive Date: 20120928
  Receipt Date: 20130306
  Transmission Date: 20140127
  Serious: Yes (Hospitalization, Other)
  Sender: FDA-Public Use
  Company Number: US-009507513-1203USA01682

PATIENT
  Sex: Female

DRUGS (6)
  1. FOSAMAX [Suspect]
     Indication: BONE LOSS
     Dosage: 70 MG, QW
     Route: 048
     Dates: start: 200604, end: 200802
  2. FOSAMAX [Suspect]
     Indication: OSTEOPOROSIS
  3. FOSAMAX [Suspect]
     Indication: BONE LOSS
     Dosage: 70 MG, QW
     Dates: start: 200802, end: 200803
  4. VYTORIN [Concomitant]
     Indication: BLOOD CHOLESTEROL INCREASED
     Dosage: 10/20 UNK, UNK
     Route: 048
  5. METOPROLOL TARTRATE [Concomitant]
     Indication: BLOOD PRESSURE
     Dosage: UNK
  6. MECLIZINE HYDROCHLORIDE [Concomitant]
     Indication: MENIERE^S DISEASE

REACTIONS (7)
  - Femur fracture [Unknown]
  - Intramedullary rod insertion [Unknown]
  - Atrial fibrillation [Recovered/Resolved]
  - Medical device removal [Unknown]
  - Arrhythmia [Unknown]
  - Cardiomegaly [Unknown]
  - Electrocardiogram T wave inversion [Unknown]
